FAERS Safety Report 4868923-7 (Version None)
Quarter: 2005Q4

REPORT INFORMATION
  Report Type: 
  Country: None (occurrence: None)
  Receive Date: 20051229
  Receipt Date: 20050218
  Transmission Date: 20060501
  Serious: Yes (Hospitalization, Other)
  Sender: FDA-Public Use
  Company Number: US-MERCK-0502USA02893

PATIENT
  Age: 63 Year
  Sex: Female
  Weight: 73 kg

DRUGS (9)
  1. VIOXX [Suspect]
     Indication: OSTEOARTHRITIS
     Route: 048
     Dates: start: 20000111, end: 20041029
  2. FAMOTIDINE [Concomitant]
     Route: 065
  3. ATROVENT [Concomitant]
     Route: 065
  4. XOPENEX [Concomitant]
     Route: 065
  5. HYDROCHLOROTHIAZIDE [Concomitant]
     Route: 065
  6. AMOXICILLIN [Concomitant]
     Route: 065
  7. MECLIZINE HYDROCHLORIDE [Concomitant]
     Route: 065
  8. PROVERA [Concomitant]
     Route: 065
  9. PREMARIN [Concomitant]
     Route: 065

REACTIONS (18)
  - ACUTE MYOCARDIAL INFARCTION [None]
  - ARRHYTHMIA [None]
  - ARTERIOSCLEROSIS [None]
  - BLOOD CHOLESTEROL INCREASED [None]
  - CARDIAC FAILURE [None]
  - CARDIOVASCULAR DISORDER [None]
  - CAROTID ARTERY STENOSIS [None]
  - CEREBRAL ARTERY STENOSIS [None]
  - CEREBRAL INFARCTION [None]
  - CEREBROVASCULAR ACCIDENT [None]
  - CEREBROVASCULAR DISORDER [None]
  - ELECTROCARDIOGRAM T WAVE INVERSION [None]
  - GASTRIC DISORDER [None]
  - HYPERTENSION [None]
  - MENOPAUSAL SYMPTOMS [None]
  - STOMACH DISCOMFORT [None]
  - SUPRAVENTRICULAR TACHYCARDIA [None]
  - SWELLING [None]
